FAERS Safety Report 11930216 (Version 1)
Quarter: 2016Q1

REPORT INFORMATION
  Report Type: Spontaneous
  Country: US (occurrence: None)
  Receive Date: 20160120
  Receipt Date: 20160120
  Transmission Date: 20160526
  Serious: Yes (Life-Threatening, Hospitalization)
  Sender: FDA-Public Use
  Company Number: None

PATIENT
  Age: 65 Year
  Sex: Male
  Weight: 84.1 kg

DRUGS (1)
  1. CHLORTHALIDONE. [Suspect]
     Active Substance: CHLORTHALIDONE
     Indication: HYPERTENSION
     Route: 048
     Dates: start: 20150910, end: 20150920

REACTIONS (5)
  - Pollakiuria [None]
  - Diarrhoea [None]
  - Hyponatraemia [None]
  - Thirst [None]
  - Musculoskeletal pain [None]

NARRATIVE: CASE EVENT DATE: 20150919
